FAERS Safety Report 11834099 (Version 1)
Quarter: 2015Q4

REPORT INFORMATION
  Report Type: Report from Study
  Country: JP (occurrence: JP)
  Receive Date: 20151214
  Receipt Date: 20151214
  Transmission Date: 20160305
  Serious: Yes (Other)
  Sender: FDA-Public Use
  Company Number: JP-009507513-1405JPN007638

PATIENT
  Age: 2 Year
  Sex: Female

DRUGS (11)
  1. DIAZOXIDE [Suspect]
     Active Substance: DIAZOXIDE
     Dosage: 16.7 MG, TID
     Route: 048
     Dates: start: 20130419, end: 20130515
  2. DIAZOXIDE [Suspect]
     Active Substance: DIAZOXIDE
     Dosage: 33.3 MG, TID
     Route: 048
     Dates: start: 20131221
  3. GASMOTIN [Concomitant]
     Active Substance: MOSAPRIDE CITRATE
     Indication: GASTROOESOPHAGEAL REFLUX DISEASE
     Dosage: 3MG, DIVIDED DOSE FREQUENCY UNKNOWN
     Route: 048
  4. DIAZOXIDE [Suspect]
     Active Substance: DIAZOXIDE
     Dosage: 18.75MG, TID,
     Route: 048
     Dates: start: 20110408, end: 20110613
  5. DIAZOXIDE [Suspect]
     Active Substance: DIAZOXIDE
     Dosage: DIVIDED DOSE FREQUENCY UNKNOWN
     Route: 048
     Dates: end: 20130331
  6. DIAZOXIDE [Suspect]
     Active Substance: DIAZOXIDE
     Dosage: 20.8 MG, TID
     Route: 048
     Dates: start: 20130401, end: 20130418
  7. C CYSTEN [Concomitant]
     Active Substance: CARBOCYSTEINE
     Indication: BRONCHITIS CHRONIC
     Dosage: DIVIDED DOSE FREQUENCY,FORMULATION FGR,
     Route: 048
     Dates: start: 20130419
  8. DIAZOXIDE [Suspect]
     Active Substance: DIAZOXIDE
     Dosage: 20.8MG, TID
     Route: 048
     Dates: start: 20110614
  9. MEPTIN [Concomitant]
     Active Substance: PROCATEROL HYDROCHLORIDE
     Indication: BRONCHITIS CHRONIC
     Dosage: DIVIDED DOSE FREQUENCY UNKNOWN
     Route: 048
     Dates: start: 20130411
  10. DIAZOXIDE [Suspect]
     Active Substance: DIAZOXIDE
     Indication: HYPOGLYCAEMIA
     Dosage: 25 MG, TID
     Route: 048
     Dates: start: 20130516, end: 20131220
  11. DIAZOXIDE [Suspect]
     Active Substance: DIAZOXIDE
     Dosage: 12.5 MG, TID
     Route: 048
     Dates: start: 20110330, end: 20110407

REACTIONS (7)
  - Sleep disorder [Recovering/Resolving]
  - Epilepsy [Recovering/Resolving]
  - Bronchitis chronic [Recovered/Resolved]
  - Bronchitis viral [Recovered/Resolved]
  - Bronchitis [Recovered/Resolved]
  - Seizure [Recovered/Resolved]
  - Epilepsy [Recovering/Resolving]

NARRATIVE: CASE EVENT DATE: 20130606
